FAERS Safety Report 7358134-8 (Version None)
Quarter: 2011Q1

REPORT INFORMATION
  Report Type: 
  Country: None (occurrence: None)
  Receive Date: 20110317
  Receipt Date: 20110308
  Transmission Date: 20110831
  Serious: Yes (Other)
  Sender: FDA-Public Use
  Company Number: US-GENZYME-CERZ-1001307

PATIENT
  Sex: Female
  Weight: 57.5 kg

DRUGS (1)
  1. CEREZYME [Suspect]
     Indication: GAUCHER'S DISEASE
     Dosage: 3200 U, Q2W
     Route: 042
     Dates: start: 19940814

REACTIONS (2)
  - EOSINOPHILIA [None]
  - PANCREATIC CARCINOMA [None]
